FAERS Safety Report 20796144 (Version 1)
Quarter: 2022Q2

REPORT INFORMATION
  Report Type: Other
  Country: BR (occurrence: BR)
  Receive Date: 20220506
  Receipt Date: 20220506
  Transmission Date: 20220720
  Serious: No
  Sender: FDA-Public Use
  Company Number: BR-TOLMAR, INC.-22BR033055

PATIENT
  Age: 8 Year
  Sex: Female

DRUGS (1)
  1. ELIGARD [Suspect]
     Active Substance: LEUPROLIDE ACETATE
     Indication: Product used for unknown indication
     Dosage: UNK, Q 6 MONTH
     Dates: start: 20220218

REACTIONS (3)
  - Malaise [Recovered/Resolved]
  - Vertigo [Recovered/Resolved]
  - Hyperhidrosis [Recovered/Resolved]

NARRATIVE: CASE EVENT DATE: 20220218
